FAERS Safety Report 5745663-3 (Version None)
Quarter: 2008Q2

REPORT INFORMATION
  Report Type: 
  Country: None (occurrence: None)
  Receive Date: 20080521
  Receipt Date: 20080515
  Transmission Date: 20081010
  Serious: Yes (Hospitalization)
  Sender: FDA-Public Use
  Company Number: US-ABBOTT-08P-163-0452052-00

PATIENT
  Sex: Female

DRUGS (4)
  1. SYNTHROID [Suspect]
     Indication: THYROID ATROPHY
     Route: 048
  2. WARFARIN SODIUM [Concomitant]
     Indication: AORTIC VALVE REPLACEMENT
     Route: 048
     Dates: start: 20010601
  3. BACLOFEN [Concomitant]
     Indication: NEURALGIA
     Route: 048
     Dates: start: 19940101
  4. GABAPENTIN [Concomitant]
     Indication: NEURALGIA
     Route: 048

REACTIONS (2)
  - DYSPHAGIA [None]
  - SCAR [None]
